FAERS Safety Report 9562577 (Version 1)
Quarter: 2013Q3

REPORT INFORMATION
  Report Type: Spontaneous
  Country: US (occurrence: US)
  Receive Date: 20130927
  Receipt Date: 20130927
  Transmission Date: 20140515
  Serious: Yes (Other)
  Sender: FDA-Public Use
  Company Number: US-UCBSA-098216

PATIENT
  Sex: Male

DRUGS (5)
  1. KEPPRA XR [Suspect]
     Indication: CONVULSION
     Dosage: 500MG 2 TABLETS BY MOUTH AT BED TIME
     Route: 048
  2. VENTOLIN HFA [Concomitant]
     Dosage: 108 (90 BASE) MCG/ACT AEROSOL SOLUTION : INHALE 2 PUFFS EVERY 4-6 HOURS AS NEEDED
  3. FEXOFENADINE HCL [Concomitant]
     Indication: SINUS CONGESTION
     Dosage: 180 MG TABLET DAILY AS NEEDED
  4. FLUTICASONE PROPIONATE [Concomitant]
     Indication: SEASONAL ALLERGY
     Dosage: 50 MCG/ACT SUSPENSION: INSTILL 2 SQUIRT DAILY AS NEEDED
  5. AZITHROMYCIN [Concomitant]
     Dosage: 250 MG TABLET- 2 ON DAY 1 AND THEN TAKE 1 TABLET A DAY FOR 4 DAYS

REACTIONS (3)
  - Cholecystectomy [Not Recovered/Not Resolved]
  - Headache [Not Recovered/Not Resolved]
  - Ear pain [Not Recovered/Not Resolved]
